FAERS Safety Report 18245160 (Version 3)
Quarter: 2020Q4

REPORT INFORMATION
  Report Type: Spontaneous
  Country: CH (occurrence: CH)
  Receive Date: 20200908
  Receipt Date: 20201223
  Transmission Date: 20210113
  Serious: Yes (Other)
  Sender: FDA-Public Use
  Company Number: CH-ROCHE-2668244

PATIENT
  Age: 54 Year
  Sex: Male
  Weight: 50 kg

DRUGS (9)
  1. MABTHERA [Suspect]
     Active Substance: RITUXIMAB
     Indication: DIFFUSE LARGE B-CELL LYMPHOMA
     Dosage: 500 MG CONCENTRATION ?SUBSEQUENT DOSE WAS ADMINISTERED ON 30/APR/2020
     Route: 042
     Dates: start: 20200207
  2. MABTHERA [Suspect]
     Active Substance: RITUXIMAB
     Route: 042
     Dates: start: 20200206, end: 20200430
  3. VINCRISTINE SULFATE. [Concomitant]
     Active Substance: VINCRISTINE SULFATE
     Dates: start: 20200207, end: 20200430
  4. DOXORUBICIN HYDROCHLORIDE. [Concomitant]
     Active Substance: DOXORUBICIN HYDROCHLORIDE
     Dates: start: 20200207, end: 20200430
  5. PREDNISON [Concomitant]
     Active Substance: PREDNISONE
     Dates: start: 20200207, end: 20200430
  6. MABTHERA [Suspect]
     Active Substance: RITUXIMAB
     Dosage: 500 MG CONCENTRATION ?SUBSEQUENT DOSE WAS ADMINISTERED ON 11/MAR/2020, 25/MAR/2020, 08/APR/2020.
     Route: 042
     Dates: start: 20200226
  7. VINCRISTINE SULFATE. [Concomitant]
     Active Substance: VINCRISTINE SULFATE
     Dates: start: 20200204, end: 20200206
  8. PREDNISON [Concomitant]
     Active Substance: PREDNISONE
     Dates: start: 20200204, end: 20200206
  9. CYCLOPHOSPHAMIDE. [Concomitant]
     Active Substance: CYCLOPHOSPHAMIDE
     Dates: start: 20200207, end: 20200430

REACTIONS (5)
  - Off label use [Unknown]
  - Mucosal inflammation [Recovered/Resolved]
  - Acute myocardial infarction [Recovered/Resolved]
  - Febrile bone marrow aplasia [Recovered/Resolved]
  - Clostridium difficile colitis [Recovered/Resolved]

NARRATIVE: CASE EVENT DATE: 20200225
